FAERS Safety Report 8094227-8 (Version None)
Quarter: 2012Q1

REPORT INFORMATION
  Report Type: 
  Country: None (occurrence: None)
  Receive Date: 20120126
  Receipt Date: 20120119
  Transmission Date: 20120608
  Serious: Yes (Other)
  Sender: FDA-Public Use
  Company Number: 2012MA001042

PATIENT
  Age: 36 Year
  Sex: Male

DRUGS (3)
  1. IBURPOFEN [Concomitant]
  2. DIAZEPAM [Concomitant]
  3. ACETAMINOPHEN AND CODEINE PHOSPHATE [Suspect]
     Dates: start: 20120104

REACTIONS (2)
  - TONGUE PRURITUS [None]
  - RASH [None]
